FAERS Safety Report 7183296-5 (Version None)
Quarter: 2010Q4

REPORT INFORMATION
  Report Type: 
  Country: None (occurrence: None)
  Receive Date: 20101222
  Receipt Date: 20100719
  Transmission Date: 20110411
  Serious: No
  Sender: FDA-Public Use
  Company Number: A0871149A

PATIENT
  Age: 64 Year
  Sex: Female

DRUGS (2)
  1. FLOVENT [Suspect]
     Dates: end: 20080101
  2. ADVAIR [Suspect]
     Indication: CHRONIC OBSTRUCTIVE PULMONARY DISEASE
     Route: 055
     Dates: start: 20080101

REACTIONS (1)
  - DRUG INEFFECTIVE [None]
